FAERS Safety Report 17123919 (Version 2)
Quarter: 2020Q1

REPORT INFORMATION
  Report Type: Report from Study
  Country: BR (occurrence: BR)
  Receive Date: 20191206
  Receipt Date: 20200308
  Transmission Date: 20200409
  Serious: Yes (Other)
  Sender: FDA-Public Use
  Company Number: BR-BIOGEN-2018BI00585121

PATIENT
  Age: 66 Year
  Sex: Female
  Weight: 70 kg

DRUGS (5)
  1. DIPYRONE [Concomitant]
     Active Substance: DIPYRONE
     Indication: PREMEDICATION
     Route: 065
  2. AVONEX PEN [Suspect]
     Active Substance: INTERFERON BETA-1A
  3. AVONEX PEN [Suspect]
     Active Substance: INTERFERON BETA-1A
     Indication: MULTIPLE SCLEROSIS
     Route: 050
     Dates: start: 20120712
  4. AVONEX PEN [Suspect]
     Active Substance: INTERFERON BETA-1A
  5. AVONEX PEN [Suspect]
     Active Substance: INTERFERON BETA-1A

REACTIONS (14)
  - Fatigue [Recovered/Resolved]
  - Back pain [Not Recovered/Not Resolved]
  - Multiple sclerosis relapse [Recovered/Resolved with Sequelae]
  - Eye pain [Not Recovered/Not Resolved]
  - Vision blurred [Not Recovered/Not Resolved]
  - Mobility decreased [Recovered/Resolved]
  - Movement disorder [Recovered/Resolved]
  - Pain in extremity [Recovered/Resolved]
  - Burning sensation [Not Recovered/Not Resolved]
  - Malaise [Recovered/Resolved]
  - Influenza [Recovered/Resolved]
  - Gait disturbance [Not Recovered/Not Resolved]
  - Joint swelling [Not Recovered/Not Resolved]
  - Peripheral swelling [Unknown]

NARRATIVE: CASE EVENT DATE: 2014
